FAERS Safety Report 5887744-X (Version None)
Quarter: 2008Q3

REPORT INFORMATION
  Report Type: 
  Country: None (occurrence: None)
  Receive Date: 20080916
  Receipt Date: 20080910
  Transmission Date: 20090109
  Serious: Yes (Death)
  Sender: FDA-Public Use
  Company Number: 2008-183409-NL

PATIENT
  Age: 25 Year
  Sex: Female

DRUGS (1)
  1. NUVARING [Suspect]
     Indication: CONTRACEPTION
     Dates: start: 20060809, end: 20060907

REACTIONS (15)
  - ANOXIC ENCEPHALOPATHY [None]
  - APNOEA [None]
  - ARRHYTHMIA [None]
  - BACK PAIN [None]
  - BRAIN DEATH [None]
  - CARDIAC ARREST [None]
  - DISSEMINATED INTRAVASCULAR COAGULATION [None]
  - MUSCLE SPASMS [None]
  - NAUSEA [None]
  - ORGAN FAILURE [None]
  - PAIN IN EXTREMITY [None]
  - PULMONARY INFARCTION [None]
  - PULSE ABSENT [None]
  - SEPTIC EMBOLUS [None]
  - VOMITING [None]
